FAERS Safety Report 8237857-2 (Version None)
Quarter: 2012Q1

REPORT INFORMATION
  Report Type: 
  Country: None (occurrence: None)
  Receive Date: 20120327
  Receipt Date: 20120316
  Transmission Date: 20120608
  Serious: Yes (Hospitalization, Other)
  Sender: FDA-Public Use
  Company Number: MX-UCBSA-053726

PATIENT
  Age: 55 Year
  Sex: Female
  Weight: 46 kg

DRUGS (5)
  1. ADEPSIQUE [Concomitant]
     Indication: DEPRESSION
     Dosage: AS USED : 10/2/3 MG; TOTAL DAILY DOSE : 20/4/6 MG
     Route: 048
     Dates: start: 20080101
  2. METFORMIN HCL [Concomitant]
     Indication: TYPE 2 DIABETES MELLITUS
     Route: 048
     Dates: start: 20080101
  3. LEVODOPA [Concomitant]
     Indication: PARKINSON'S DISEASE
     Route: 048
     Dates: start: 20080101
  4. NUBRENZA [Suspect]
     Indication: PARKINSON'S DISEASE
     Route: 062
     Dates: start: 20111007, end: 20120205
  5. AMLODIPINE [Concomitant]
     Indication: HYPERTENSION
     Route: 048
     Dates: start: 20080101

REACTIONS (3)
  - RENAL FAILURE [None]
  - CEREBROVASCULAR ACCIDENT [None]
  - WEIGHT DECREASED [None]
